APPROVED DRUG PRODUCT: VASCEPA
Active Ingredient: ICOSAPENT ETHYL
Strength: 500MG
Dosage Form/Route: CAPSULE;ORAL
Application: N202057 | Product #002 | TE Code: AB
Applicant: AMARIN PHARMACEUTICALS IRELAND LTD
Approved: Feb 16, 2017 | RLD: Yes | RS: No | Type: RX

PATENTS:
Patent 8445013 | Expires: Apr 29, 2030
Patent 8518929 | Expires: Feb 9, 2030
Patent 8399446 | Expires: Feb 9, 2030
Patent 8546372 | Expires: Feb 9, 2030
Patent 8617594 | Expires: Apr 29, 2030
Patent 8445003 | Expires: Apr 29, 2030
Patent 8426399 | Expires: Feb 9, 2030
Patent 8623406 | Expires: Apr 29, 2030
Patent 8617593 | Expires: Apr 29, 2030
Patent 9198892 | Expires: Sep 25, 2027
Patent 9700537 | Expires: May 31, 2027
Patent 8410086 | Expires: Jun 15, 2030
Patent 8454994 | Expires: Apr 29, 2030
Patent 8617593 | Expires: Apr 29, 2030
Patent 8623406 | Expires: Apr 29, 2030
Patent 8642077 | Expires: Apr 29, 2030
Patent 8669245 | Expires: Jun 15, 2030
Patent 8680144 | Expires: Feb 9, 2030
Patent 8703185 | Expires: Apr 29, 2030
Patent 8709475 | Expires: Apr 29, 2030
Patent 8691871 | Expires: Apr 29, 2030
Patent 8710041 | Expires: Jun 15, 2030
Patent 9603826 | Expires: Jun 28, 2033
Patent 9610272 | Expires: Jun 28, 2033
Patent 9693984 | Expires: Jun 28, 2033
Patent 9623001 | Expires: Jun 28, 2033
Patent 9693985 | Expires: Jun 28, 2033
Patent 9693986 | Expires: Jun 28, 2033
Patent 10010517 | Expires: Apr 29, 2030
Patent 9918954 | Expires: Jun 28, 2033
Patent 10278935 | Expires: Jun 28, 2033
Patent 10265287 | Expires: Apr 29, 2030
Patent 10278936 | Expires: Jun 28, 2033
Patent 10278937 | Expires: Jun 28, 2033
Patent 10383840 | Expires: Jun 28, 2033
Patent 10555924 | Expires: Jun 28, 2033
Patent 10555925 | Expires: Jun 28, 2033
Patent 8415335 | Expires: Feb 9, 2030
Patent 8501225 | Expires: Apr 29, 2030
Patent 8524698 | Expires: Feb 9, 2030
Patent 8563608 | Expires: Apr 29, 2030
Patent 11369582 | Expires: Jun 28, 2033
Patent 11298333 | Expires: Jun 28, 2033
Patent 12171738 | Expires: Feb 9, 2030
Patent 11154526 | Expires: Apr 29, 2030
Patent 10568861 | Expires: Jun 28, 2033
Patent 10668042 | Expires: Jun 28, 2033
Patent 10576054 | Expires: Jun 28, 2033
Patent 11717504 | Expires: Apr 29, 2030
Patent 10792270 | Expires: Jun 28, 2033
Patent 10786478 | Expires: Jun 28, 2033
Patent 10786478 | Expires: Jun 28, 2033
Patent 10792267 | Expires: Apr 29, 2030
Patent 10842766 | Expires: Apr 29, 2030
Patent 10842768 | Expires: Jun 15, 2030
Patent 10881632 | Expires: Apr 29, 2030
Patent 10894028 | Expires: Jun 28, 2033
Patent 11103477 | Expires: Apr 29, 2030
Patent 11000499 | Expires: Jun 28, 2033
Patent 11116742 | Expires: Jun 28, 2033
Patent 11213504 | Expires: Apr 29, 2030
Patent 8551521 | Expires: Apr 29, 2030
Patent 8298554 | Expires: Apr 29, 2030